FAERS Safety Report 19410353 (Version 1)
Quarter: 2021Q2

REPORT INFORMATION
  Report Type: Spontaneous
  Country: US (occurrence: US)
  Receive Date: 20210614
  Receipt Date: 20210614
  Transmission Date: 20210717
  Serious: No
  Sender: FDA-Public Use
  Company Number: US-ELI_LILLY_AND_COMPANY-US202105009957

PATIENT
  Sex: Female

DRUGS (5)
  1. TRULICITY [Suspect]
     Active Substance: DULAGLUTIDE
     Indication: DIABETES MELLITUS
     Dosage: 0.75 MG, UNKNOWN
     Route: 058
     Dates: start: 202102
  2. METHOTREXATE. [Concomitant]
     Active Substance: METHOTREXATE
     Indication: CONGENITAL SYPHILITIC OSTEOCHONDRITIS
     Dosage: 2.5 MG, WEEKLY (1/W)
  3. LOSARTAN. [Concomitant]
     Active Substance: LOSARTAN
     Indication: BLOOD PRESSURE INCREASED
     Dosage: 50 MG, DAILY
  4. TOUJEO [Concomitant]
     Active Substance: INSULIN GLARGINE
     Indication: DIABETES MELLITUS
     Dosage: 45 U, EACH EVENING
  5. PREDNISONE. [Suspect]
     Active Substance: PREDNISONE
     Indication: CONGENITAL SYPHILITIC OSTEOCHONDRITIS
     Dosage: UNK UNK, UNKNOWN

REACTIONS (1)
  - Blood glucose increased [Unknown]
